FAERS Safety Report 8741946 (Version 3)
Quarter: 2012Q4

REPORT INFORMATION
  Report Type: Report from Study
  Country: DE (occurrence: DE)
  Receive Date: 20120824
  Receipt Date: 20121003
  Transmission Date: 20130627
  Serious: Yes (Life-Threatening, Hospitalization, Other)
  Sender: FDA-Public Use
  Company Number: DE-GENZYME-CLOF-1002261

PATIENT
  Age: 47 None
  Sex: Male
  Weight: 95.8 kg

DRUGS (29)
  1. EVOLTRA [Suspect]
     Indication: ACUTE MYELOID LEUKAEMIA
     Dosage: 25 mg/m2, qd
     Route: 065
     Dates: start: 20120629, end: 20120703
  2. EVOLTRA [Suspect]
     Dosage: 25 mg/m2, UNK
     Route: 065
     Dates: start: 20120731, end: 20120804
  3. CYTARABINE [Suspect]
     Indication: ACUTE MYELOID LEUKAEMIA
     Dosage: 750 mg/m2, qd
     Route: 065
     Dates: start: 20120629, end: 20120703
  4. CYTARABINE [Suspect]
     Dosage: 750 mg/m2, UNK
     Route: 065
     Dates: start: 20120731, end: 20120804
  5. IDARUBICIN [Suspect]
     Indication: ACUTE MYELOID LEUKAEMIA
     Dosage: 7.5 mg/m2, qd
     Route: 065
     Dates: start: 20120629, end: 20120701
  6. IDARUBICIN [Suspect]
     Dosage: 7.5 mg/m2, UNK
     Route: 065
     Dates: start: 20120731, end: 20120802
  7. VANCOMYCIN [Concomitant]
     Indication: PRODUCT USED FOR UNKNOWN INDICATION
     Dosage: 1000 mg, qd
     Route: 042
     Dates: start: 20120810
  8. ACICLOVIR [Concomitant]
     Indication: PRODUCT USED FOR UNKNOWN INDICATION
     Dosage: 400 mg, UNK
     Route: 048
     Dates: start: 20120726
  9. RIVOTRIL [Concomitant]
     Indication: PRODUCT USED FOR UNKNOWN INDICATION
     Dosage: 1 mg, qd
     Route: 065
     Dates: start: 20120804
  10. RINGER [Concomitant]
     Indication: PRODUCT USED FOR UNKNOWN INDICATION
     Route: 065
     Dates: start: 20120810
  11. PIRITRAMIDE [Concomitant]
     Indication: PRODUCT USED FOR UNKNOWN INDICATION
     Dosage: 7.5 mg, qd
     Route: 065
     Dates: start: 20120811, end: 20120812
  12. NOXAFIL [Concomitant]
     Indication: PRODUCT USED FOR UNKNOWN INDICATION
     Dosage: UNK
     Route: 065
     Dates: start: 20120805
  13. BELOC ZOK [Concomitant]
     Indication: PRODUCT USED FOR UNKNOWN INDICATION
     Dosage: 47.5 mg, bid
     Route: 065
  14. NORVASC [Concomitant]
     Indication: PRODUCT USED FOR UNKNOWN INDICATION
     Dosage: 10 mg, qd
     Route: 048
  15. NACL [Concomitant]
     Indication: PRODUCT USED FOR UNKNOWN INDICATION
     Dosage: 0.9% 1000ml daily
     Route: 065
     Dates: start: 20120801
  16. L-THYROXINE [Concomitant]
     Indication: PRODUCT USED FOR UNKNOWN INDICATION
     Dosage: 50 mcg, qd
     Route: 048
     Dates: start: 20120731
  17. POTASSIUM CHLORIDE [Concomitant]
     Indication: PRODUCT USED FOR UNKNOWN INDICATION
     Dosage: 20 ml, qd
     Route: 030
     Dates: start: 20120808
  18. FORTUM [Concomitant]
     Indication: PRODUCT USED FOR UNKNOWN INDICATION
     Dosage: 2 g, qd
     Route: 065
     Dates: start: 20120810
  19. CLONT [Concomitant]
     Indication: PRODUCT USED FOR UNKNOWN INDICATION
     Dosage: 400 mg, qd
     Route: 065
     Dates: start: 20120807
  20. CLEXANE [Concomitant]
     Indication: PRODUCT USED FOR UNKNOWN INDICATION
     Dosage: 40 mg, qd
     Route: 065
     Dates: start: 20120805
  21. CLEXANE [Concomitant]
     Dosage: 20 mg/l, qd
     Route: 058
  22. CIPROBAY [Concomitant]
     Indication: PRODUCT USED FOR UNKNOWN INDICATION
     Dosage: 500 mg, qd
     Route: 065
     Dates: start: 20120730
  23. PROTON PUMP INHIBITORS [Concomitant]
     Indication: PRODUCT USED FOR UNKNOWN INDICATION
     Dosage: UNK
     Route: 065
  24. DELIX [Concomitant]
     Indication: PRODUCT USED FOR UNKNOWN INDICATION
     Dosage: 5 mg, qd
     Route: 048
  25. CARBAMAZEPINE [Concomitant]
     Indication: EPILEPSY
     Dosage: UNK
     Route: 065
     Dates: end: 2012
  26. PARACETAMOL [Concomitant]
     Indication: PRODUCT USED FOR UNKNOWN INDICATION
     Dosage: 1000 mg, tid
     Route: 042
  27. OXCARBAZEPINE [Concomitant]
     Indication: EPILEPSY
     Dosage: 450 mg, UNK
     Route: 065
     Dates: start: 2012
  28. ESOMEPRAZOLE [Concomitant]
     Indication: PRODUCT USED FOR UNKNOWN INDICATION
     Dosage: 40 mcg, qd
     Route: 065
  29. ZOFRAN [Concomitant]
     Indication: PRODUCT USED FOR UNKNOWN INDICATION
     Dosage: 4 mg, qd
     Route: 048
     Dates: start: 20120802

REACTIONS (26)
  - Subarachnoid haemorrhage [Recovered/Resolved]
  - Respiratory gas exchange disorder [Recovered/Resolved]
  - Metabolic acidosis [Recovered/Resolved]
  - Abscess neck [Recovered/Resolved]
  - Tenderness [Recovered/Resolved]
  - Depressed level of consciousness [Recovered/Resolved]
  - Abdominal distension [Unknown]
  - Colitis [Recovered/Resolved]
  - Ascites [Unknown]
  - Atrial fibrillation [Unknown]
  - Pancytopenia [Recovered/Resolved]
  - Neutropenic colitis [Recovered/Resolved]
  - Leukopenia [Recovered/Resolved]
  - Pneumonia [Recovered/Resolved]
  - Abdominal pain [Recovered/Resolved]
  - Diarrhoea [Recovered/Resolved]
  - Renal failure [Recovered/Resolved]
  - Dyspnoea [Unknown]
  - Fatigue [Unknown]
  - Faecaloma [Unknown]
  - Gastrointestinal disorder [Unknown]
  - Anxiety [Unknown]
  - Wound infection [Unknown]
  - Septic shock [Recovered/Resolved]
  - Sepsis [Recovered/Resolved]
  - Hypotension [Recovered/Resolved]
